FAERS Safety Report 8073651-3 (Version None)
Quarter: 2012Q1

REPORT INFORMATION
  Report Type: 
  Country: None (occurrence: None)
  Receive Date: 20120126
  Receipt Date: 20120118
  Transmission Date: 20120608
  Serious: Yes (Hospitalization)
  Sender: FDA-Public Use
  Company Number: BE-ROCHE-1016670

PATIENT
  Sex: Female
  Weight: 61 kg

DRUGS (3)
  1. PEGINTERFERON ALFA-2A [Suspect]
     Indication: HEPATITIS C
     Dates: start: 20110505, end: 20111013
  2. COPEGUS [Suspect]
     Indication: HEPATITIS C
     Dates: start: 20110505, end: 20111017
  3. BLINDED TMC435 (NS3/4A PROTEASE INHIBITOR) [Suspect]
     Indication: HEPATITIS C
     Dates: start: 20110505, end: 20111013

REACTIONS (1)
  - AUTOIMMUNE HEPATITIS [None]
